FAERS Safety Report 5895051-4 (Version None)
Quarter: 2008Q3

REPORT INFORMATION
  Report Type: 
  Country: None (occurrence: None)
  Receive Date: 20080924
  Receipt Date: 20080911
  Transmission Date: 20090109
  Serious: Yes (Death, Hospitalization)
  Sender: FDA-Public Use
  Company Number: US-PFIZER INC-2008076686

PATIENT
  Sex: Female

DRUGS (10)
  1. SU-011,248 [Suspect]
     Indication: BREAST CANCER
     Route: 048
     Dates: start: 20080717, end: 20080904
  2. PACLITAXEL [Suspect]
     Indication: BREAST CANCER
     Route: 042
     Dates: start: 20080717, end: 20080904
  3. GLIMEPIRIDE [Concomitant]
     Route: 048
     Dates: start: 20010101, end: 20080911
  4. ZOMETA [Concomitant]
     Dates: start: 20060524, end: 20080911
  5. VITAMIN E [Concomitant]
  6. VITAMIN B6 [Concomitant]
  7. MULTI-VITAMINS [Concomitant]
     Dosage: TEXT:1 DAILY
     Route: 048
  8. FENTANYL [Concomitant]
  9. LYRICA [Concomitant]
     Route: 048
  10. FEMARA [Concomitant]
     Route: 048

REACTIONS (3)
  - MYOCARDIAL INFARCTION [None]
  - NEUTROPENIC SEPSIS [None]
  - PAIN [None]
